FAERS Safety Report 9476287 (Version 1)
Quarter: 2013Q3

REPORT INFORMATION
  Report Type: Spontaneous
  Country: US (occurrence: US)
  Receive Date: 20130826
  Receipt Date: 20130826
  Transmission Date: 20140515
  Serious: Yes (Life-Threatening, Hospitalization, Other)
  Sender: FDA-Public Use
  Company Number: US-JNJFOC-20130807402

PATIENT
  Sex: 0

DRUGS (2)
  1. FENTANYL TRANSDERMAL SYSTEM [Suspect]
     Indication: PRODUCT USED FOR UNKNOWN INDICATION
     Route: 048
  2. FENTANYL TRANSDERMAL SYSTEM [Suspect]
     Indication: PRODUCT USED FOR UNKNOWN INDICATION
     Route: 048

REACTIONS (9)
  - Drug dependence [Unknown]
  - Toxicity to various agents [Unknown]
  - Completed suicide [Unknown]
  - Drug abuse [Unknown]
  - Drug diversion [Unknown]
  - Intentional drug misuse [Unknown]
  - Respiratory failure [Recovered/Resolved]
  - Incorrect route of drug administration [Unknown]
  - Loss of consciousness [Unknown]
